FAERS Safety Report 7906028-9 (Version None)
Quarter: 2011Q4

REPORT INFORMATION
  Report Type: 
  Country: None (occurrence: None)
  Receive Date: 20111110
  Receipt Date: 20111104
  Transmission Date: 20120403
  Serious: Yes (Other)
  Sender: FDA-Public Use
  Company Number: FR-BRISTOL-MYERS SQUIBB COMPANY-16158453

PATIENT
  Age: 65 Year
  Sex: Female
  Weight: 68 kg

DRUGS (2)
  1. ONGLYZA [Suspect]
     Indication: TYPE 2 DIABETES MELLITUS
     Dosage: ONGLYZA TABS 5 MG
     Dates: start: 20110609, end: 20110610
  2. METFORMIN HCL [Suspect]

REACTIONS (4)
  - DRUG INTOLERANCE [None]
  - SWOLLEN TONGUE [None]
  - OROPHARYNGEAL DISCOMFORT [None]
  - FACE OEDEMA [None]
